FAERS Safety Report 22372905 (Version 1)
Quarter: 2023Q2

REPORT INFORMATION
  Report Type: Spontaneous
  Country: US (occurrence: US)
  Receive Date: 20230526
  Receipt Date: 20230526
  Transmission Date: 20230722
  Serious: No
  Sender: FDA-Public Use
  Company Number: US-009507513-2305USA008072

PATIENT
  Age: 63 Year
  Sex: Female

DRUGS (8)
  1. KEYTRUDA [Suspect]
     Active Substance: PEMBROLIZUMAB
     Indication: Bile duct squamous cell carcinoma
     Dosage: UNK
  2. KEYTRUDA [Suspect]
     Active Substance: PEMBROLIZUMAB
     Indication: Metastatic squamous cell carcinoma
  3. CISPLATIN [Concomitant]
     Active Substance: CISPLATIN
     Indication: Bile duct squamous cell carcinoma
     Dosage: UNK
  4. CISPLATIN [Concomitant]
     Active Substance: CISPLATIN
     Indication: Metastatic squamous cell carcinoma
  5. PACLITAXEL [Concomitant]
     Active Substance: PACLITAXEL
     Indication: Bile duct squamous cell carcinoma
     Dosage: UNK
  6. PACLITAXEL [Concomitant]
     Active Substance: PACLITAXEL
     Indication: Metastatic squamous cell carcinoma
  7. BEVACIZUMAB [Concomitant]
     Active Substance: BEVACIZUMAB
     Indication: Bile duct squamous cell carcinoma
     Dosage: UNK
  8. BEVACIZUMAB [Concomitant]
     Active Substance: BEVACIZUMAB
     Indication: Metastatic squamous cell carcinoma

REACTIONS (1)
  - Product use in unapproved indication [Unknown]
